FAERS Safety Report 7006514-2 (Version None)
Quarter: 2010Q3

REPORT INFORMATION
  Report Type: 
  Country: None (occurrence: None)
  Receive Date: 20100921
  Receipt Date: 20100921
  Transmission Date: 20110219
  Serious: Yes (Hospitalization)
  Sender: FDA-Public Use
  Company Number: None

PATIENT
  Age: 7 Year
  Sex: Male
  Weight: 23.9 kg

DRUGS (5)
  1. RAD001 (EVEROLIMUS) 5.0 MG/M2 [Suspect]
     Indication: DISEASE PROGRESSION
     Dosage: 4.0 MG DAILY AND BY MOUTH
     Route: 048
     Dates: start: 20100728
  2. LEVOXYL [Concomitant]
  3. ZOFRAN [Concomitant]
  4. BACTRIM [Concomitant]
  5. NEURONTIN [Concomitant]

REACTIONS (2)
  - HEADACHE [None]
  - SHUNT MALFUNCTION [None]
